FAERS Safety Report 5273560-9 (Version None)
Quarter: 2007Q1

REPORT INFORMATION
  Report Type: 
  Country: None (occurrence: None)
  Receive Date: 20070321
  Receipt Date: 20070321
  Transmission Date: 20070707
  Serious: Yes (Hospitalization, Other)
  Sender: FDA-Public Use
  Company Number: None

PATIENT
  Age: 18 Year
  Sex: Male
  Weight: 56.6996 kg

DRUGS (1)
  1. AMBIEN [Suspect]
     Dosage: 1 PILL
     Dates: start: 20060613, end: 20060615

REACTIONS (9)
  - DISCOMFORT [None]
  - DISORIENTATION [None]
  - FACIAL BONES FRACTURE [None]
  - INCOHERENT [None]
  - JAW FRACTURE [None]
  - LOSS OF CONSCIOUSNESS [None]
  - PAIN [None]
  - ROAD TRAFFIC ACCIDENT [None]
  - SCAR [None]
